FAERS Safety Report 15639474 (Version 1)
Quarter: 2018Q4

REPORT INFORMATION
  Report Type: Spontaneous
  Country: US (occurrence: US)
  Receive Date: 20181120
  Receipt Date: 20181120
  Transmission Date: 20190205
  Serious: Yes (Other)
  Sender: FDA-Public Use
  Company Number: US-PURACAP PHARMACEUTICAL LLC-2018EPC00466

PATIENT
  Age: 29 Year
  Sex: Female

DRUGS (1)
  1. IBUPROFEN. [Suspect]
     Active Substance: IBUPROFEN
     Dosage: 60000 MG, ONCE

REACTIONS (7)
  - Metabolic acidosis [Recovering/Resolving]
  - Mental status changes [Recovering/Resolving]
  - Hypothermia [Recovering/Resolving]
  - Acute kidney injury [Recovering/Resolving]
  - Acute hepatic failure [Recovering/Resolving]
  - Overdose [Recovering/Resolving]
  - Shock [Recovering/Resolving]
